FAERS Safety Report 9882730 (Version 1)
Quarter: 2014Q1

REPORT INFORMATION
  Report Type: Spontaneous
  Country: JP (occurrence: JP)
  Receive Date: 20140207
  Receipt Date: 20140207
  Transmission Date: 20141002
  Serious: No
  Sender: FDA-Public Use
  Company Number: JP-SUCAMPO PHARMA AMERICAS, INC-SPI201400075

PATIENT
  Age: 40 Year
  Sex: Female

DRUGS (1)
  1. AMITIZA [Suspect]
     Indication: CONSTIPATION
     Dosage: 24 MCG, BID
     Route: 048
     Dates: start: 20140127

REACTIONS (1)
  - Dyspnoea [Recovered/Resolved]
